FAERS Safety Report 12570287 (Version 2)
Quarter: 2016Q3

REPORT INFORMATION
  Report Type: Spontaneous
  Country: US (occurrence: US)
  Receive Date: 20160719
  Receipt Date: 20160930
  Transmission Date: 20161109
  Serious: Yes (Death, Other)
  Sender: FDA-Public Use
  Company Number: US-PFIZER INC-2015010849

PATIENT
  Age: 75 Year
  Sex: Male
  Weight: 102.5 kg

DRUGS (2)
  1. VFEND [Suspect]
     Active Substance: VORICONAZOLE
     Indication: SEPSIS
     Dosage: 200 MG, 2X/DAY (ONE TABLET)
     Route: 048
  2. VFEND [Suspect]
     Active Substance: VORICONAZOLE
     Indication: ARTERIOVENOUS GRAFT SITE INFECTION

REACTIONS (4)
  - Cardiac arrest [Fatal]
  - Ischaemic cardiomyopathy [Fatal]
  - Pyrexia [Unknown]
  - Cardiac failure congestive [Fatal]

NARRATIVE: CASE EVENT DATE: 20160707
